FAERS Safety Report 5269100-0 (Version None)
Quarter: 2007Q1

REPORT INFORMATION
  Report Type: 
  Country: None (occurrence: None)
  Receive Date: 20070314
  Receipt Date: 20070227
  Transmission Date: 20070707
  Serious: No
  Sender: FDA-Public Use
  Company Number: 2007S1001741

PATIENT
  Age: 73 Year
  Sex: Male
  Weight: 78.0187 kg

DRUGS (9)
  1. FENTANYL TRANSDERMAL SYSTEM [Suspect]
     Indication: ARTHRALGIA
     Dosage: 25 UG/HR; EVERY 3 DAYS; TRANSDERMAL
     Route: 062
     Dates: start: 20061001
  2. SERETIDE /01420901/ [Concomitant]
  3. TAMSULOSIN HCL [Concomitant]
  4. DUTASTERIDE [Concomitant]
  5. OMEPRAZOLE [Concomitant]
  6. HYZAAR [Concomitant]
  7. DILTIAZEM [Concomitant]
  8. CLOPIDOGREL [Concomitant]
  9. EZETIMIBE [Concomitant]

REACTIONS (4)
  - DRUG WITHDRAWAL SYNDROME [None]
  - MIDDLE INSOMNIA [None]
  - NO THERAPEUTIC RESPONSE [None]
  - URINARY RETENTION [None]
